FAERS Safety Report 5352151-5 (Version None)
Quarter: 2007Q2

REPORT INFORMATION
  Report Type: 
  Country: None (occurrence: None)
  Receive Date: 20070611
  Receipt Date: 20070531
  Transmission Date: 20071010
  Serious: Yes (Hospitalization)
  Sender: FDA-Public Use
  Company Number: JP-NOVOPROD-260155

PATIENT
  Age: 48 Year
  Sex: Male
  Weight: 75 kg

DRUGS (3)
  1. NOVORAPID 30 MIX CHU FLEXPEN [Suspect]
     Indication: DIABETES MELLITUS
     Route: 058
     Dates: start: 20051101, end: 20060701
  2. HUMALOG [Concomitant]
     Indication: DIABETES MELLITUS
     Dates: start: 20060701, end: 20060701
  3. HUMACART N [Concomitant]
     Indication: DIABETES MELLITUS
     Dates: start: 20060701

REACTIONS (3)
  - DRUG HYPERSENSITIVITY [None]
  - HYPERGLYCAEMIA [None]
  - WEIGHT DECREASED [None]
